FAERS Safety Report 9836293 (Version 2)
Quarter: 2014Q1

REPORT INFORMATION
  Report Type: Spontaneous
  Country: US (occurrence: US)
  Receive Date: 20140123
  Receipt Date: 20140212
  Transmission Date: 20141002
  Serious: No
  Sender: FDA-Public Use
  Company Number: US-BIOGENIDEC-2014BI004715

PATIENT
  Age: 72 Year
  Sex: Male

DRUGS (10)
  1. TYSABRI [Suspect]
     Indication: MULTIPLE SCLEROSIS
     Route: 042
     Dates: start: 20120221, end: 20130305
  2. AVONEX [Concomitant]
     Indication: MULTIPLE SCLEROSIS
     Route: 030
     Dates: start: 20081001
  3. AVONEX [Concomitant]
     Indication: MULTIPLE SCLEROSIS
     Route: 030
     Dates: start: 20001206
  4. NEURONTIN [Concomitant]
     Dates: start: 20130716
  5. LIORESAL [Concomitant]
  6. CELEXA [Concomitant]
  7. ENABLEX [Concomitant]
  8. NEXIUM [Concomitant]
  9. NEURONTIN [Concomitant]
  10. LORTAB [Concomitant]

REACTIONS (1)
  - Infection [Unknown]
